FAERS Safety Report 7114417-8 (Version None)
Quarter: 2010Q4

REPORT INFORMATION
  Report Type: 
  Country: None (occurrence: None)
  Receive Date: 20101119
  Receipt Date: 20101113
  Transmission Date: 20110411
  Serious: Yes (Other)
  Sender: FDA-Public Use
  Company Number: US-GENENTECH-309776

PATIENT
  Age: 32 Year
  Sex: Female

DRUGS (9)
  1. XOLAIR [Suspect]
     Indication: ASTHMA
     Dosage: 0.062 MG, SINGLE
     Route: 058
  2. XOLAIR [Suspect]
     Dosage: 0.625 MG, UNK
     Route: 058
  3. XOLAIR [Suspect]
     Dosage: 1.25 MG, UNK
     Route: 058
  4. XOLAIR [Suspect]
     Dosage: 2.5 MG, UNK
     Route: 058
  5. XOLAIR [Suspect]
     Dosage: 5 MG, UNK
  6. XOLAIR [Suspect]
     Dosage: 10 MG, UNK
     Route: 058
  7. XOLAIR [Suspect]
     Dosage: 20 MG, UNK
     Route: 058
  8. XOLAIR [Suspect]
     Dosage: 37 MG, UNK
     Route: 058
  9. XOLAIR [Suspect]
     Dosage: 37 MG, UNK
     Route: 058

REACTIONS (2)
  - ANAPHYLACTIC REACTION [None]
  - VOCAL CORD DISORDER [None]
